FAERS Safety Report 16058782 (Version 2)
Quarter: 2019Q2

REPORT INFORMATION
  Report Type: Spontaneous
  Country: PK (occurrence: PK)
  Receive Date: 20190311
  Receipt Date: 20190425
  Transmission Date: 20190711
  Serious: Yes (Death)
  Sender: FDA-Public Use
  Company Number: PK-BAYER-2019-049463

PATIENT
  Age: 48 Year
  Sex: Female

DRUGS (3)
  1. ULTRAVIST [Suspect]
     Active Substance: IOPROMIDE
     Indication: DYSPNOEA
  2. ULTRAVIST [Suspect]
     Active Substance: IOPROMIDE
     Indication: CHEST DISCOMFORT
  3. ULTRAVIST [Suspect]
     Active Substance: IOPROMIDE
     Indication: COMPUTERISED TOMOGRAM THORAX
     Dosage: UNK, ONCE
     Route: 042
     Dates: start: 20190227, end: 20190227

REACTIONS (5)
  - Mouth haemorrhage [Fatal]
  - Dyspnoea [Fatal]
  - Somnolence [Fatal]
  - Eye haemorrhage [Fatal]
  - Chest discomfort [Fatal]

NARRATIVE: CASE EVENT DATE: 20190227
